FAERS Safety Report 6417403-6 (Version None)
Quarter: 2009Q4

REPORT INFORMATION
  Report Type: 
  Country: None (occurrence: None)
  Receive Date: 20091028
  Receipt Date: 20091019
  Transmission Date: 20100525
  Serious: Yes (Death, Other)
  Sender: FDA-Public Use
  Company Number: US-NOVOPROD-293003

PATIENT
  Sex: Male
  Weight: 87.528 kg

DRUGS (19)
  1. NOVOLOG [Suspect]
     Indication: INSULIN-REQUIRING TYPE 2 DIABETES MELLITUS
     Dosage: SLIDING SCALE
     Route: 058
     Dates: start: 20070101
  2. LANTUS [Concomitant]
     Indication: INSULIN-REQUIRING TYPE 2 DIABETES MELLITUS
     Dosage: 45 IU, BID
     Route: 058
  3. WELLBUTRIN [Concomitant]
     Indication: DEPRESSION
     Dosage: 300 MG, QD
     Route: 048
  4. COREG [Concomitant]
     Indication: HYPERTENSION
     Dosage: 25 MG, BID
     Route: 048
  5. PLAVIX [Concomitant]
     Indication: CEREBROVASCULAR ACCIDENT
     Dosage: 75 MG, QD
     Route: 048
  6. DIGOXIN [Concomitant]
     Indication: CARDIAC DISORDER
     Dosage: .125 MG, QD
     Route: 048
  7. DOXEPIN HCL [Concomitant]
     Indication: SLEEP DISORDER
     Dosage: 25 MG, QD
     Route: 048
  8. TRICOR [Concomitant]
     Indication: BLOOD TRIGLYCERIDES INCREASED
     Dosage: 145 MG, QD
     Route: 048
  9. FOLIC ACID [Concomitant]
     Indication: DRUG USE FOR UNKNOWN INDICATION
     Dosage: 1 MG, QD
     Route: 048
  10. LASIX [Concomitant]
     Indication: CARDIAC FAILURE CONGESTIVE
     Dosage: 20 MG, BID
     Route: 048
  11. VICODIN [Concomitant]
     Indication: DRUG USE FOR UNKNOWN INDICATION
     Dosage: 1 TAB, PRN
     Route: 048
  12. SYNTHROID [Concomitant]
     Indication: HYPOTHYROIDISM
     Dosage: 75 UNK, QD
     Route: 048
  13. ZESTRIL [Concomitant]
     Indication: HYPERTENSION
     Dosage: 40 MG, QD
     Route: 048
  14. ANTIVERT                           /00007101/ [Concomitant]
     Indication: VERTIGO
     Dosage: 25 MG, QID PRN
     Route: 048
     Dates: start: 20080101
  15. CRESTOR [Concomitant]
     Indication: BLOOD CHOLESTEROL INCREASED
     Dosage: 40 MG, QD
     Route: 048
  16. NEPHROCAPS [Concomitant]
     Indication: RENAL FAILURE
     Dosage: 1 TAB, QD
     Route: 048
  17. SPIRIVA [Concomitant]
     Indication: CHRONIC OBSTRUCTIVE PULMONARY DISEASE
     Dosage: 1 PUFF, QD
     Route: 055
  18. OXYGEN [Concomitant]
     Indication: CHRONIC OBSTRUCTIVE PULMONARY DISEASE
     Dosage: 3 L CONTINUOUS
     Route: 055
     Dates: start: 20040101
  19. PRILOSEC [Concomitant]
     Indication: GASTROOESOPHAGEAL REFLUX DISEASE
     Dosage: UNK, PRN
     Route: 048

REACTIONS (1)
  - TRANSIENT ISCHAEMIC ATTACK [None]
